FAERS Safety Report 5158582-0 (Version None)
Quarter: 2006Q4

REPORT INFORMATION
  Report Type: 
  Country: None (occurrence: None)
  Receive Date: 20061128
  Receipt Date: 20061115
  Transmission Date: 20070319
  Serious: Yes (Congenital Anomaly)
  Sender: FDA-Public Use
  Company Number: GB-ROCHE-472250

PATIENT
  Age: 35 Year
  Sex: Female

DRUGS (8)
  1. INVIRASE [Suspect]
     Indication: SYSTEMIC ANTIVIRAL TREATMENT
     Dosage: FORM REPORTED AS DRY TABLET.
     Route: 065
  2. ABACAVIR [Suspect]
     Indication: SYSTEMIC ANTIVIRAL TREATMENT
     Dosage: STARTED PRIOR TO CONCEPTION.  DOSING REGIMEN: DAILY.
     Route: 065
  3. ABACAVIR [Suspect]
     Route: 065
  4. LAMIVUDINE [Suspect]
     Indication: SYSTEMIC ANTIVIRAL TREATMENT
     Route: 065
  5. NEVIRAPINE [Suspect]
     Indication: SYSTEMIC ANTIVIRAL TREATMENT
     Dosage: STARTED PRIOR TO CONCEPTION.
     Route: 065
  6. NEVIRAPINE [Suspect]
     Route: 065
  7. NORVIR [Suspect]
     Indication: SYSTEMIC ANTIVIRAL TREATMENT
     Route: 065
     Dates: start: 20060411
  8. ZIDOVUDINE [Suspect]
     Indication: SYSTEMIC ANTIVIRAL TREATMENT
     Route: 065
     Dates: start: 20060411

REACTIONS (4)
  - ALPHA 1 FOETOPROTEIN INCREASED [None]
  - CONGENITAL ANOMALY [None]
  - DRUG EXPOSURE DURING PREGNANCY [None]
  - PREGNANCY [None]
